FAERS Safety Report 8999896 (Version 1)
Quarter: 2013Q1

REPORT INFORMATION
  Report Type: Spontaneous
  Country: JP (occurrence: JP)
  Receive Date: 20130102
  Receipt Date: 20130102
  Transmission Date: 20140127
  Serious: Yes (Hospitalization, Other)
  Sender: FDA-Public Use
  Company Number: JP-SANOFI-AVENTIS-2012SA077634

PATIENT
  Age: 74 Year
  Sex: Female
  Weight: 58 kg

DRUGS (19)
  1. ELPLAT [Suspect]
     Indication: RECTAL CANCER
     Route: 041
     Dates: start: 20110825, end: 20110825
  2. ELPLAT [Suspect]
     Indication: COLON CANCER
     Route: 041
     Dates: start: 20110825, end: 20110825
  3. 5-FU [Suspect]
     Indication: RECTAL CANCER
     Route: 040
     Dates: start: 20110825, end: 20110825
  4. 5-FU [Suspect]
     Indication: COLON CANCER
     Route: 040
     Dates: start: 20110825, end: 20110825
  5. 5-FU [Suspect]
     Indication: RECTAL CANCER
     Route: 041
     Dates: start: 20110825, end: 20110825
  6. 5-FU [Suspect]
     Indication: COLON CANCER
     Route: 041
     Dates: start: 20110825, end: 20110825
  7. CALCIUM LEVOFOLINATE [Concomitant]
     Dosage: 192.6 MG/M2
     Dates: start: 20110825, end: 20110825
  8. NASEA [Concomitant]
     Dates: start: 20110825, end: 20110825
  9. CHLOR-TRIMETON [Concomitant]
     Dates: start: 20110825, end: 20110825
  10. DEXAMETHASONE SODIUM PHOSPHATE [Concomitant]
     Dates: start: 20110825, end: 20110825
  11. CLOSTRIDIUM BUTYRICUM [Concomitant]
     Dosage: POWDER
     Dates: start: 20110709
  12. EXCELASE [Concomitant]
     Dates: start: 20110709
  13. GASMOTIN [Concomitant]
     Dates: start: 20110709
  14. ARICEPT [Concomitant]
  15. VASOLAN [Concomitant]
  16. SENNOSIDE A+B [Concomitant]
  17. HORIZON [Concomitant]
     Dates: start: 20110827, end: 20110827
  18. SAXIZON [Concomitant]
     Dates: start: 20110827, end: 20110827
  19. NAUZELIN [Concomitant]
     Dates: start: 20110829, end: 20110829

REACTIONS (6)
  - Depressed level of consciousness [Recovered/Resolved]
  - Convulsion [Recovered/Resolved]
  - Asthenia [Recovered/Resolved]
  - Nausea [Recovered/Resolved]
  - Decreased appetite [Recovered/Resolved]
  - Renal impairment [Recovering/Resolving]
